FAERS Safety Report 7725548-3 (Version None)
Quarter: 2011Q3

REPORT INFORMATION
  Report Type: 
  Country: None (occurrence: None)
  Receive Date: 20110902
  Receipt Date: 20110824
  Transmission Date: 20111222
  Serious: Yes (Other)
  Sender: FDA-Public Use
  Company Number: CH-NOVOPROD-334172

PATIENT

DRUGS (9)
  1. PLAVIX [Concomitant]
     Dosage: 1 DF, QD
     Route: 048
  2. ATACAND [Concomitant]
     Dosage: 8 MG, QD
     Route: 048
  3. ACTIVELLE [Suspect]
     Dosage: 2 DF, QW
     Route: 048
     Dates: start: 20000101
  4. PLAQUENIL [Concomitant]
     Indication: RHEUMATOID ARTHRITIS
     Dosage: 2 DF, QW
     Route: 048
     Dates: start: 20060101, end: 20110101
  5. ASPIRIN [Concomitant]
     Dosage: 1 DF, QD
     Dates: start: 20090101
  6. CALCIMAGON D3 [Concomitant]
     Dosage: ORAL
     Route: 048
  7. ATORVASTATIN CALCIUM [Concomitant]
     Dosage: 40 MG, QD
     Route: 048
     Dates: start: 20060101
  8. EZETIMIBE [Suspect]
     Dosage: 1 DF, QD
     Route: 048
     Dates: start: 20081020, end: 20101201
  9. EZETIMIBE [Suspect]
     Dosage: 1 DF, QD
     Route: 048
     Dates: start: 20060101, end: 20100101

REACTIONS (2)
  - OVARIAN CANCER [None]
  - COLD SWEAT [None]
